FAERS Safety Report 12501853 (Version 1)
Quarter: 2016Q2

REPORT INFORMATION
  Report Type: Spontaneous
  Country: US (occurrence: US)
  Receive Date: 20160627
  Receipt Date: 20160627
  Transmission Date: 20160815
  Serious: No
  Sender: FDA-Public Use
  Company Number: US-SA-2015SA188690

PATIENT
  Age: 27 Year
  Sex: Female

DRUGS (1)
  1. HECTOROL [Suspect]
     Active Substance: DOXERCALCIFEROL
     Route: 042
     Dates: start: 2015, end: 20151111

REACTIONS (1)
  - Exposure during pregnancy [Unknown]

NARRATIVE: CASE EVENT DATE: 2015
